FAERS Safety Report 4966664-9 (Version None)
Quarter: 2006Q1

REPORT INFORMATION
  Report Type: 
  Country: None (occurrence: None)
  Receive Date: 20060201
  Receipt Date: 20051201
  Transmission Date: 20060701
  Serious: No
  Sender: FDA-Public Use
  Company Number: 2005PV005729

PATIENT
  Age: 51 Year
  Sex: Male
  Weight: 108.8633 kg

DRUGS (8)
  1. BYETTA [Suspect]
     Indication: DIABETES MELLITUS NON-INSULIN-DEPENDENT
     Dosage: SEE IMAGE
     Route: 058
     Dates: start: 20050810, end: 20050918
  2. BYETTA [Suspect]
     Indication: DIABETES MELLITUS NON-INSULIN-DEPENDENT
     Dosage: SEE IMAGE
     Route: 058
     Dates: start: 20050919
  3. GLUCOPHAGE [Concomitant]
  4. AVANDAMET [Concomitant]
  5. COUMADIN [Concomitant]
  6. ASACOL [Concomitant]
  7. NEORAL [Concomitant]
  8. ATACAND [Concomitant]

REACTIONS (1)
  - WEIGHT DECREASED [None]
